FAERS Safety Report 8394378-4 (Version None)
Quarter: 2012Q2

REPORT INFORMATION
  Report Type: 
  Country: None (occurrence: None)
  Receive Date: 20120530
  Receipt Date: 20120525
  Transmission Date: 20120825
  Serious: Yes (Death, Other)
  Sender: FDA-Public Use
  Company Number: AU-SANOFI-AVENTIS-2012SA030225

PATIENT

DRUGS (11)
  1. TAMSULOSIN HCL [Concomitant]
  2. METOPROLOL TARTRATE [Concomitant]
  3. ATORVASTATIN CALCIUM [Concomitant]
  4. ALBUTEROL [Concomitant]
  5. ENOXAPARIN SODIUM [Suspect]
     Indication: PULMONARY EMBOLISM
     Route: 065
  6. PERINDOPRIL ERBUMINE [Concomitant]
  7. OXYCODONE HCL [Concomitant]
  8. DOXYCYCLINE [Concomitant]
  9. ACETAMINOPHEN [Concomitant]
  10. CEFTRIAXONE [Concomitant]
  11. COLOXYL WITH SENNA [Concomitant]

REACTIONS (1)
  - PULMONARY EMBOLISM [None]
